FAERS Safety Report 7824321-5 (Version None)
Quarter: 2011Q4

REPORT INFORMATION
  Report Type: 
  Country: None (occurrence: None)
  Receive Date: 20111018
  Receipt Date: 20111018
  Transmission Date: 20120403
  Serious: No
  Sender: FDA-Public Use
  Company Number: None

PATIENT
  Sex: Male
  Weight: 79 kg

DRUGS (12)
  1. MICARDIS [Concomitant]
  2. INSULIN [Concomitant]
  3. ATIVAN [Suspect]
     Indication: ANXIETY
     Dosage: 0.5MG Q6HOURS PRN IV
     Route: 042
     Dates: start: 20110713, end: 20110715
  4. DILAUDID [Concomitant]
  5. PROTONIX [Concomitant]
  6. ZYLOPRIM [Concomitant]
  7. LOVENOX [Concomitant]
  8. ASPIRIN [Concomitant]
  9. PROSCAR [Concomitant]
  10. ZOFRAN [Concomitant]
  11. ZOCOR [Concomitant]
  12. AMARYL [Concomitant]

REACTIONS (1)
  - UNRESPONSIVE TO STIMULI [None]
